FAERS Safety Report 24298712 (Version 1)
Quarter: 2024Q3

REPORT INFORMATION
  Report Type: Spontaneous
  Country: US (occurrence: US)
  Receive Date: 20240909
  Receipt Date: 20240909
  Transmission Date: 20241016
  Serious: No
  Sender: BAYER
  Company Number: US-BAYER-2024A128225

PATIENT
  Age: 65 Year

DRUGS (2)
  1. MIRALAX [Suspect]
     Active Substance: POLYETHYLENE GLYCOL 3350
     Indication: Constipation
     Dosage: UNK, QD
     Dates: start: 202305, end: 202311
  2. MIRALAX [Suspect]
     Active Substance: POLYETHYLENE GLYCOL 3350
     Indication: Constipation
     Dosage: UNK
     Dates: start: 202405, end: 202407

REACTIONS (10)
  - Off label use [None]
  - Migraine [Not Recovered/Not Resolved]
  - Tinnitus [Not Recovered/Not Resolved]
  - Neuralgia [Not Recovered/Not Resolved]
  - Gastrointestinal pain [None]
  - Dry mouth [Recovering/Resolving]
  - Vision blurred [None]
  - Headache [Not Recovered/Not Resolved]
  - Arthralgia [None]
  - Pain [None]

NARRATIVE: CASE EVENT DATE: 20230101
